FAERS Safety Report 14327227 (Version 5)
Quarter: 2018Q2

REPORT INFORMATION
  Report Type: Report from Study
  Country: US (occurrence: US)
  Receive Date: 20171227
  Receipt Date: 20180402
  Transmission Date: 20180711
  Serious: Yes (Hospitalization, Other)
  Sender: FDA-Public Use
  Company Number: US-BAYER-2017-181622

PATIENT
  Age: 80 Year
  Sex: Male
  Weight: 71.5 kg

DRUGS (22)
  1. XGEVA [Concomitant]
     Active Substance: DENOSUMAB
     Indication: CHEMOTHERAPY
  2. REMERON [Concomitant]
     Active Substance: MIRTAZAPINE
     Dosage: 30 MG, UNK
     Route: 048
  3. LIDOCAINE. [Concomitant]
     Active Substance: LIDOCAINE
     Route: 061
  4. PREDNISONE. [Concomitant]
     Active Substance: PREDNISONE
  5. PEMBROLIZUMAB. [Suspect]
     Active Substance: PEMBROLIZUMAB
     Indication: NON-SMALL CELL LUNG CANCER
     Dosage: 2 MG/KG, Q3WK
     Route: 042
     Dates: start: 2017, end: 2017
  6. PEMBROLIZUMAB. [Suspect]
     Active Substance: PEMBROLIZUMAB
     Indication: NON-SMALL CELL LUNG CANCER
     Dosage: 200 MG, UNK
     Route: 042
     Dates: start: 20170929
  7. ATORVASTATIN [Concomitant]
     Active Substance: ATORVASTATIN
     Dosage: UNK
  8. ATORVASTATIN [Concomitant]
     Active Substance: ATORVASTATIN
  9. INDOCIN [INDOMETACIN] [Concomitant]
     Dosage: 25 MG, BID
     Route: 048
  10. ACETYLSALICYLIC ACID (} 100 MG) [Suspect]
     Active Substance: ASPIRIN
     Indication: HEADACHE
     Dosage: 162 MG, ONCE
     Route: 048
     Dates: start: 20170429, end: 20170429
  11. ATORVASTATIN [Concomitant]
     Active Substance: ATORVASTATIN
  12. XGEVA [Concomitant]
     Active Substance: DENOSUMAB
     Indication: CHEMOTHERAPY
     Dosage: 120 MG, Q6WK
     Route: 058
     Dates: end: 20171020
  13. OXYGEN. [Concomitant]
     Active Substance: OXYGEN
     Dosage: 2 L, UNK
  14. ATORVASTATIN [Concomitant]
     Active Substance: ATORVASTATIN
     Dosage: 2 L, UNK
  15. XGEVA [Concomitant]
     Active Substance: DENOSUMAB
     Indication: CHEMOTHERAPY
     Dosage: 120 MG, UNK
     Route: 058
     Dates: end: 20171020
  16. PEMBROLIZUMAB. [Suspect]
     Active Substance: PEMBROLIZUMAB
     Indication: NON-SMALL CELL LUNG CANCER
     Dosage: UNK
     Dates: start: 20170321
  17. ATORVASTATIN [Concomitant]
     Active Substance: ATORVASTATIN
  18. XGEVA [Concomitant]
     Active Substance: DENOSUMAB
     Indication: CHEMOTHERAPY
  19. ACETYLSALICYLIC ACID (} 100 MG) [Suspect]
     Active Substance: ASPIRIN
     Indication: HEADACHE
     Dosage: 2 DF, UNK
     Route: 048
     Dates: start: 20170429
  20. PEMBROLIZUMAB. [Suspect]
     Active Substance: PEMBROLIZUMAB
     Indication: NON-SMALL CELL LUNG CANCER
     Dosage: 200 MG, Q3WK
     Route: 042
     Dates: start: 20170321
  21. PEMBROLIZUMAB. [Suspect]
     Active Substance: PEMBROLIZUMAB
     Indication: NON-SMALL CELL LUNG CANCER
     Dosage: 2 MG/KG, Q3WK
     Route: 042
     Dates: start: 20170728, end: 20170728
  22. ALLOPURINOL. [Concomitant]
     Active Substance: ALLOPURINOL
     Indication: GOUT

REACTIONS (37)
  - Cough [Not Recovered/Not Resolved]
  - Lymphoedema [Recovering/Resolving]
  - Dyspnoea [Unknown]
  - Dermatitis psoriasiform [Unknown]
  - Atrioventricular block [Recovered/Resolved]
  - Drug ineffective [Unknown]
  - Phlebitis [Unknown]
  - Infusion site cellulitis [Unknown]
  - Fungal infection [Recovering/Resolving]
  - Weight increased [Unknown]
  - Headache [Unknown]
  - Headache [Recovered/Resolved]
  - Joint swelling [Recovering/Resolving]
  - Lymphadenopathy [Unknown]
  - Muscular weakness [Unknown]
  - Pain in extremity [Unknown]
  - Fatigue [Recovered/Resolved]
  - Rash [Recovering/Resolving]
  - Arthritis [Unknown]
  - Snoring [Unknown]
  - Motor dysfunction [Recovering/Resolving]
  - Peripheral swelling [Unknown]
  - Somnolence [Unknown]
  - Muscular weakness [Recovering/Resolving]
  - Psoriasis [Recovering/Resolving]
  - Arthralgia [Recovered/Resolved]
  - Chest discomfort [Unknown]
  - Chest discomfort [Recovered/Resolved]
  - Oxygen saturation decreased [Unknown]
  - Migraine [Recovered/Resolved]
  - Arthralgia [Recovering/Resolving]
  - Paraesthesia [Recovered/Resolved]
  - Hypoaesthesia [Unknown]
  - Pain [Unknown]
  - Neck pain [Unknown]
  - Faeces discoloured [Recovered/Resolved]
  - Diarrhoea [Recovered/Resolved]

NARRATIVE: CASE EVENT DATE: 2017
